FAERS Safety Report 16864996 (Version 5)
Quarter: 2021Q4

REPORT INFORMATION
  Report Type: Report from Study
  Country: NL (occurrence: NL)
  Receive Date: 20190929
  Receipt Date: 20211213
  Transmission Date: 20220304
  Serious: Yes (Hospitalization, Other)
  Sender: FDA-Public Use
  Company Number: NL-ABBVIE-19S-114-2712235-00

PATIENT
  Sex: Male
  Weight: 86 kg

DRUGS (3)
  1. CARBIDOPA\LEVODOPA [Suspect]
     Active Substance: CARBIDOPA\LEVODOPA
     Indication: Parkinson^s disease
     Dosage: MD 3.0 ML CD 3.2 ML/H ED 2.5 ML CDN 2.6 ML/H EDN 1.0 ML?GOES TO 24 HOURS
     Route: 050
     Dates: start: 20181024
  2. CARBIDOPA\LEVODOPA [Suspect]
     Active Substance: CARBIDOPA\LEVODOPA
     Dosage: MD 3.0 ML CD 3.5 ML/H ED 3.0 ML CDN 2.9 ML/H EDN 1.3 ML?REMAINS AT 24 HOURS
     Route: 050
  3. CARBIDOPA\LEVODOPA [Suspect]
     Active Substance: CARBIDOPA\LEVODOPA
     Dosage: CND: 2.9 ML/H, END:1.3 ML?REMAINS AT 24 HOURS
     Route: 050

REACTIONS (24)
  - Hospitalisation [Recovered/Resolved]
  - Spinal stenosis [Recovered/Resolved]
  - Memory impairment [Not Recovered/Not Resolved]
  - Disturbance in attention [Not Recovered/Not Resolved]
  - Muscle rigidity [Not Recovered/Not Resolved]
  - Cognitive disorder [Not Recovered/Not Resolved]
  - Impaired quality of life [Unknown]
  - Hypovitaminosis [Not Recovered/Not Resolved]
  - Anaemia [Not Recovered/Not Resolved]
  - Nocturia [Not Recovered/Not Resolved]
  - Weight increased [Recovered/Resolved]
  - Paraesthesia [Unknown]
  - Weight decreased [Recovered/Resolved]
  - Decreased appetite [Not Recovered/Not Resolved]
  - Hypoaesthesia [Not Recovered/Not Resolved]
  - Malaise [Not Recovered/Not Resolved]
  - Weight decreased [Not Recovered/Not Resolved]
  - Gait disturbance [Not Recovered/Not Resolved]
  - Therapeutic product effect incomplete [Recovering/Resolving]
  - On and off phenomenon [Not Recovered/Not Resolved]
  - Hyperkinesia [Not Recovered/Not Resolved]
  - Dyskinesia [Recovered/Resolved]
  - Bradykinesia [Not Recovered/Not Resolved]
  - Polyneuropathy [Not Recovered/Not Resolved]

NARRATIVE: CASE EVENT DATE: 20210101
